FAERS Safety Report 8094540-4 (Version None)
Quarter: 2012Q1

REPORT INFORMATION
  Report Type: 
  Country: None (occurrence: None)
  Receive Date: 20120131
  Receipt Date: 20120130
  Transmission Date: 20120608
  Serious: Yes (Other)
  Sender: FDA-Public Use
  Company Number: US-BAYER-2012-009369

PATIENT
  Sex: Female

DRUGS (4)
  1. GADAVIST [Suspect]
     Indication: NUCLEAR MAGNETIC RESONANCE IMAGING
     Dosage: 7.5 ML, ONCE
     Dates: start: 20120129
  2. GADAVIST [Suspect]
     Indication: PAIN IN EXTREMITY
  3. GADAVIST [Suspect]
     Indication: HYPOAESTHESIA
  4. GADAVIST [Suspect]
     Indication: LIMB DISCOMFORT

REACTIONS (5)
  - SYNCOPE [None]
  - DYSPNOEA [None]
  - HYPOTENSION [None]
  - OEDEMA MOUTH [None]
  - PRURITUS [None]
